FAERS Safety Report 17370088 (Version 1)
Quarter: 2020Q1

REPORT INFORMATION
  Report Type: Spontaneous
  Country: FR (occurrence: FR)
  Receive Date: 20200205
  Receipt Date: 20200205
  Transmission Date: 20200409
  Serious: Yes (Other)
  Sender: FDA-Public Use
  Company Number: FR-BIOVITRUM-2020FR0472

PATIENT
  Age: 3 Year
  Sex: Male

DRUGS (1)
  1. ORFADIN [Suspect]
     Active Substance: NITISINONE
     Indication: TYROSINAEMIA
     Route: 064

REACTIONS (4)
  - Cognitive disorder [Unknown]
  - Congenital cerebellar agenesis [Unknown]
  - Motor developmental delay [Unknown]
  - Foetal exposure during pregnancy [Recovered/Resolved]

NARRATIVE: CASE EVENT DATE: 2020
